FAERS Safety Report 19688639 (Version 1)
Quarter: 2021Q3

REPORT INFORMATION
  Report Type: Report from Study
  Country: US (occurrence: US)
  Receive Date: 20210812
  Receipt Date: 20210812
  Transmission Date: 20211014
  Serious: No
  Sender: FDA-Public Use
  Company Number: US-IPSEN BIOPHARMACEUTICALS, INC.-2021-19430

PATIENT
  Sex: Male

DRUGS (1)
  1. SOMATULINE DEPOT [Suspect]
     Active Substance: LANREOTIDE ACETATE
     Indication: DUCTAL ADENOCARCINOMA OF PANCREAS
     Route: 058

REACTIONS (2)
  - Solar lentigo [Not Recovered/Not Resolved]
  - Injection site nodule [Not Recovered/Not Resolved]
